FAERS Safety Report 8884622 (Version 1)
Quarter: 2012Q4

REPORT INFORMATION
  Report Type: 
  Country: CA (occurrence: CA)
  Receive Date: 20121102
  Receipt Date: 20121102
  Transmission Date: 20130627
  Serious: Yes (Other)
  Sender: FDA-Public Use
  Company Number: CA-PFIZER INC-2012267908

PATIENT
  Age: 61 Year
  Sex: Male

DRUGS (15)
  1. CELEBREX [Suspect]
     Indication: BACK PAIN
     Dosage: 200 mg, 1x/day
     Dates: start: 20010525
  2. LIPITOR [Concomitant]
     Indication: CHOLESTEROL
     Dosage: 80 mg, 1x/day
  3. ALTACE [Concomitant]
     Dosage: 5 mg, 1x/day
  4. AMITRIPTYLINE [Concomitant]
     Dosage: 20 mg, 1x/day
  5. PLAVIX [Concomitant]
     Dosage: 75 mg, 1x/day
  6. APO-METOPROLOL [Concomitant]
     Dosage: 25 mg, 2x/day
  7. ASAPHEN [Concomitant]
     Dosage: 80 mg, 1x/day
  8. EFEXOR XR [Concomitant]
     Dosage: UNK
  9. VITATHION [Concomitant]
     Dosage: UNK
  10. ZYPREXA [Concomitant]
     Dosage: 5 mg, 1x/day
  11. NEURONTIN [Concomitant]
     Dosage: 100 mg, 2x/day
  12. ELAVIL [Concomitant]
     Dosage: UNK
  13. APO-CYCLOBENZAPRINE [Concomitant]
     Dosage: 10 mg, 1x/day
  14. DESIPRAMINE [Concomitant]
     Dosage: 50 mg, once daily
  15. PAXIL [Concomitant]
     Dosage: UNK

REACTIONS (2)
  - Myocardial infarction [Unknown]
  - Arrhythmia [Unknown]
